FAERS Safety Report 9392325 (Version 1)
Quarter: 2013Q3

REPORT INFORMATION
  Report Type: Report from Study
  Country: MX (occurrence: MX)
  Receive Date: 20130710
  Receipt Date: 20130710
  Transmission Date: 20140515
  Serious: Yes (Death, Other)
  Sender: FDA-Public Use
  Company Number: MX-ROCHE-1212333

PATIENT
  Age: 55 Year
  Sex: Male
  Weight: 55 kg

DRUGS (5)
  1. XELODA [Suspect]
     Indication: GASTRIC CANCER
     Route: 048
     Dates: start: 201211
  2. XELODA [Suspect]
     Route: 048
     Dates: start: 20130328
  3. OXALIPLATIN [Suspect]
     Indication: CHEMOTHERAPY
     Route: 042
     Dates: start: 20130405
  4. OMEPRAZOLE [Concomitant]
     Route: 048
  5. TRANSFER FACTOR [Concomitant]
     Indication: GASTRIC CANCER
     Route: 065

REACTIONS (11)
  - Death [Fatal]
  - Dyspnoea [Recovered/Resolved]
  - Pyrexia [Recovered/Resolved]
  - Convulsion [Recovered/Resolved]
  - Arthralgia [Recovering/Resolving]
  - Nausea [Not Recovered/Not Resolved]
  - Vomiting [Not Recovered/Not Resolved]
  - Hypertension [Not Recovered/Not Resolved]
  - Paraesthesia [Recovered/Resolved]
  - Dizziness [Recovered/Resolved]
  - Pain in jaw [Recovered/Resolved]
